FAERS Safety Report 14752818 (Version 3)
Quarter: 2018Q2

REPORT INFORMATION
  Report Type: Report from Study
  Country: US (occurrence: US)
  Receive Date: 20180412
  Receipt Date: 20180531
  Transmission Date: 20180711
  Serious: Yes (Hospitalization)
  Sender: FDA-Public Use
  Company Number: US-BEH-2018089596

PATIENT
  Age: 3 Year
  Sex: Female
  Weight: 12.3 kg

DRUGS (3)
  1. HIZENTRA [Suspect]
     Active Substance: HUMAN IMMUNOGLOBULIN G
     Indication: PRIMARY IMMUNODEFICIENCY SYNDROME
     Dosage: 4 G, QOW
     Route: 058
     Dates: start: 20180328
  2. HIZENTRA [Suspect]
     Active Substance: HUMAN IMMUNOGLOBULIN G
     Dosage: UNK
     Route: 058
     Dates: start: 20180329
  3. BENADRYL [Concomitant]
     Active Substance: DIPHENHYDRAMINE HYDROCHLORIDE
     Indication: PREMEDICATION

REACTIONS (9)
  - Swelling face [Recovered/Resolved]
  - Pyrexia [Recovered/Resolved]
  - Injection site mass [Recovered/Resolved]
  - Fatigue [Recovered/Resolved]
  - Pyrexia [Not Recovered/Not Resolved]
  - Pruritus [Recovered/Resolved]
  - Dehydration [Recovered/Resolved]
  - Gastrointestinal viral infection [Recovered/Resolved]
  - Vomiting [Recovered/Resolved]

NARRATIVE: CASE EVENT DATE: 201803
